FAERS Safety Report 15921024 (Version 1)
Quarter: 2019Q1

REPORT INFORMATION
  Report Type: Spontaneous
  Country: US (occurrence: US)
  Receive Date: 20190205
  Receipt Date: 20190205
  Transmission Date: 20190417
  Serious: No
  Sender: FDA-Public Use
  Company Number: US-GALDERMA-US18003982

PATIENT
  Age: 30 Year
  Sex: Female

DRUGS (3)
  1. SOOLANTRA [Suspect]
     Active Substance: IVERMECTIN
     Indication: PRODUCT USED FOR UNKNOWN INDICATION
     Dosage: 1%
     Route: 061
  2. SOLODYN [Concomitant]
     Active Substance: MINOCYCLINE HYDROCHLORIDE
     Dosage: 55 MG
  3. RETIN-A [Concomitant]
     Active Substance: TRETINOIN
     Dosage: 0.08

REACTIONS (1)
  - Skin burning sensation [Unknown]
